FAERS Safety Report 25445219 (Version 1)
Quarter: 2025Q2

REPORT INFORMATION
  Report Type: Spontaneous
  Country: US (occurrence: US)
  Receive Date: 20250617
  Receipt Date: 20250617
  Transmission Date: 20250717
  Serious: Yes (Other)
  Sender: BAYER HEALTHCARE LLC
  Company Number: US-BAYER-2025A076158

PATIENT
  Age: 81 Year
  Sex: Male

DRUGS (3)
  1. CORICIDIN HBP COUGH AND COLD [Suspect]
     Active Substance: CHLORPHENIRAMINE MALEATE\DEXTROMETHORPHAN HYDROBROMIDE
     Indication: Hypersensitivity
     Route: 048
     Dates: start: 20250604, end: 20250604
  2. CORICIDIN HBP COUGH AND COLD [Suspect]
     Active Substance: CHLORPHENIRAMINE MALEATE\DEXTROMETHORPHAN HYDROBROMIDE
     Indication: Nasopharyngitis
  3. BENZONATATE [Concomitant]
     Active Substance: BENZONATATE

REACTIONS (2)
  - Delirium [None]
  - Sleep talking [None]

NARRATIVE: CASE EVENT DATE: 20250604
